FAERS Safety Report 10903771 (Version 1)
Quarter: 2015Q1

REPORT INFORMATION
  Report Type: Spontaneous
  Country: US (occurrence: None)
  Receive Date: 20150304
  Receipt Date: 20150304
  Transmission Date: 20150721
  Serious: No
  Sender: FDA-Public Use
  Company Number: None

PATIENT
  Age: 64 Year
  Sex: Male
  Weight: 106.6 kg

DRUGS (1)
  1. LIPITOR [Suspect]
     Active Substance: ATORVASTATIN CALCIUM
     Indication: BLOOD CHOLESTEROL INCREASED
     Dosage: 1
     Route: 048
     Dates: start: 20130725, end: 20140522

REACTIONS (5)
  - Fatigue [None]
  - Hypoxia [None]
  - Respiratory muscle weakness [None]
  - Muscular weakness [None]
  - Dyspnoea exertional [None]

NARRATIVE: CASE EVENT DATE: 20131212
